FAERS Safety Report 5666573-6 (Version None)
Quarter: 2008Q1

REPORT INFORMATION
  Report Type: 
  Country: None (occurrence: None)
  Receive Date: 20080315
  Receipt Date: 20071218
  Transmission Date: 20080703
  Serious: No
  Sender: FDA-Public Use
  Company Number: US-ABBOTT-07P-163-0430998-00

PATIENT
  Sex: Female
  Weight: 127.9 kg

DRUGS (2)
  1. HUMIRA [Suspect]
     Indication: PSORIATIC ARTHROPATHY
     Route: 058
     Dates: start: 20071120
  2. NORGESTIMATE AND ETHINYL ESTRADIOL [Concomitant]
     Indication: CONTRACEPTION
     Route: 048

REACTIONS (1)
  - INJECTION SITE SWELLING [None]
